FAERS Safety Report 5401964-X (Version None)
Quarter: 2007Q3

REPORT INFORMATION
  Report Type: 
  Country: None (occurrence: None)
  Receive Date: 20070731
  Receipt Date: 20070724
  Transmission Date: 20080115
  Serious: Yes (Hospitalization)
  Sender: FDA-Public Use
  Company Number: FR-GENENTECH-245207

PATIENT
  Sex: Female
  Weight: 52 kg

DRUGS (4)
  1. RITUXAN [Suspect]
     Indication: LYMPHOPROLIFERATIVE DISORDER
     Dosage: 375 MG/M2, UNK
     Route: 042
     Dates: start: 20070509, end: 20070509
  2. KALETRA [Concomitant]
     Indication: DRUG USE FOR UNKNOWN INDICATION
     Dosage: UNK, UNK
     Dates: start: 20020101
  3. ZIAGEN [Concomitant]
     Indication: DRUG USE FOR UNKNOWN INDICATION
     Dates: start: 20070101
  4. VIREAD [Concomitant]
     Indication: DRUG USE FOR UNKNOWN INDICATION
     Dates: start: 20070301

REACTIONS (1)
  - NEPHROTIC SYNDROME [None]
